FAERS Safety Report 8214241-9 (Version None)
Quarter: 2012Q1

REPORT INFORMATION
  Report Type: 
  Country: None (occurrence: None)
  Receive Date: 20120316
  Receipt Date: 20120305
  Transmission Date: 20120608
  Serious: Yes (Other)
  Sender: FDA-Public Use
  Company Number: GB-JNJFOC-20110800823

PATIENT
  Sex: Female

DRUGS (3)
  1. REMICADE [Suspect]
     Indication: RHEUMATOID ARTHRITIS
     Route: 042
     Dates: start: 20050919, end: 20060915
  2. LEFLUNOMIDE [Concomitant]
     Dates: start: 20070813
  3. HYDROXYCHLOROQUINE SULFATE [Concomitant]
     Dates: start: 20050919

REACTIONS (1)
  - BASAL CELL CARCINOMA [None]
